FAERS Safety Report 18860785 (Version 1)
Quarter: 2021Q1

REPORT INFORMATION
  Report Type: Spontaneous
  Country: US (occurrence: US)
  Receive Date: 20210208
  Receipt Date: 20210208
  Transmission Date: 20210420
  Serious: No
  Sender: FDA-Public Use
  Company Number: US-AMGEN-USASP2021017950

PATIENT
  Age: 5 Year
  Sex: Male

DRUGS (5)
  1. PEDIASURE [NUTRIENTS NOS] [Concomitant]
     Indication: VITAMIN C DEFICIENCY
     Dosage: 19 19 KCAL/KG, QD
  2. CINACALCET HCL [Suspect]
     Active Substance: CINACALCET HYDROCHLORIDE
     Indication: HYPERPARATHYROIDISM SECONDARY
     Dosage: 30 MILLIGRAM, QD
     Route: 065
  3. RENALKA [SODIUM CITROTARTRATE] [Concomitant]
     Indication: VITAMIN C DEFICIENCY
     Dosage: 40 KCAL/KG, QD
  4. SEVELAMER CARBONATE. [Concomitant]
     Active Substance: SEVELAMER CARBONATE
     Dosage: 1.2 GRAM, TID
  5. VOL CARE RX [Concomitant]
     Dosage: 60 MILLIGRAM, QD

REACTIONS (2)
  - Off label use [Unknown]
  - Osteitis [Unknown]
